FAERS Safety Report 9394620 (Version 1)
Quarter: 2013Q3

REPORT INFORMATION
  Report Type: Spontaneous
  Country: US (occurrence: US)
  Receive Date: 20130711
  Receipt Date: 20130711
  Transmission Date: 20140515
  Serious: Yes (Other)
  Sender: FDA-Public Use
  Company Number: PHEH2013US014529

PATIENT
  Sex: Male

DRUGS (5)
  1. DIOVAN [Suspect]
     Dosage: 80 MG, QD
     Route: 048
     Dates: start: 1995
  2. DIOVAN [Suspect]
     Dosage: 0.5 DF (80MG), UNK
  3. LOSARTAN [Concomitant]
     Dosage: 50 MG, QD
     Route: 048
     Dates: start: 20130703
  4. ZETIA [Concomitant]
     Dosage: 10 MG, QD
     Route: 048
  5. GLIPIZIDE XL [Concomitant]
     Dosage: 2.5 MG, QD
     Route: 048

REACTIONS (2)
  - Colon cancer [Unknown]
  - Wrong technique in drug usage process [Unknown]
